FAERS Safety Report 6812626-6 (Version None)
Quarter: 2010Q3

REPORT INFORMATION
  Report Type: 
  Country: None (occurrence: None)
  Receive Date: 20100701
  Receipt Date: 20100622
  Transmission Date: 20110219
  Serious: Yes (Other)
  Sender: FDA-Public Use
  Company Number: US-PFIZER INC-2010060868

PATIENT
  Age: 19 Year
  Sex: Male
  Weight: 83.914 kg

DRUGS (3)
  1. GEODON [Suspect]
     Indication: PSYCHOTIC DISORDER
     Dosage: 60 MG DAILY
     Dates: start: 20100501, end: 20100101
  2. ZYPREXA [Concomitant]
     Dosage: 5 MG, UNK
  3. DEPAKOTE [Concomitant]
     Dosage: 1000 MG, UNK

REACTIONS (4)
  - CYANOSIS [None]
  - LIP SWELLING [None]
  - PARAESTHESIA [None]
  - PRURITUS [None]
